FAERS Safety Report 13343992 (Version 1)
Quarter: 2017Q1

REPORT INFORMATION
  Report Type: Report from Study
  Country: US (occurrence: US)
  Receive Date: 20170316
  Receipt Date: 20170316
  Transmission Date: 20170428
  Serious: Yes (Other)
  Sender: FDA-Public Use
  Company Number: US-009507513-1703USA004300

PATIENT
  Sex: Female

DRUGS (1)
  1. ETONOGESTREL IMPLANT- UNKNOWN [Suspect]
     Active Substance: ETONOGESTREL
     Indication: MENSTRUAL DISCOMFORT
     Dosage: UNK
     Route: 059

REACTIONS (3)
  - Product use issue [Unknown]
  - Diabetes mellitus [Unknown]
  - Mood swings [Recovering/Resolving]
